FAERS Safety Report 6264811-2 (Version None)
Quarter: 2009Q3

REPORT INFORMATION
  Report Type: 
  Country: None (occurrence: None)
  Receive Date: 20090710
  Receipt Date: 20090630
  Transmission Date: 20100115
  Serious: Yes (Life-Threatening, Hospitalization)
  Sender: FDA-Public Use
  Company Number: DE-ABBOTT-09P-062-0582686-00

PATIENT
  Sex: Female

DRUGS (1)
  1. ERGENYL TABLETS [Suspect]
     Indication: SUICIDE ATTEMPT
     Route: 048
     Dates: start: 20090621, end: 20090621

REACTIONS (2)
  - CARDIOVASCULAR DISORDER [None]
  - INTENTIONAL OVERDOSE [None]
